FAERS Safety Report 9602179 (Version 2)
Quarter: 2013Q4

REPORT INFORMATION
  Report Type: Spontaneous
  Country: GB (occurrence: GB)
  Receive Date: 20131007
  Receipt Date: 20131216
  Transmission Date: 20140711
  Serious: Yes (Death, Disabling, Other)
  Sender: FDA-Public Use
  Company Number: GB-TEVA-435555ISR

PATIENT
  Age: 64 Year
  Sex: Male

DRUGS (6)
  1. SIMVASTATIN [Suspect]
     Route: 048
  2. AMITRIPTYLINE [Concomitant]
     Dosage: 10 MILLIGRAM DAILY; 10 MG NIGHT ONCE A DAY
  3. PARACETAMOL [Concomitant]
     Dosage: 4 GRAM DAILY;
  4. HYDROCORTISONE [Concomitant]
     Dosage: 20 MILLIGRAM DAILY;
  5. LEVOTHYROXINE [Concomitant]
     Dosage: 200 MICROGRAM DAILY;
  6. GENOTROPIN [Concomitant]

REACTIONS (5)
  - Pulmonary fibrosis [Fatal]
  - Pneumonia [Fatal]
  - Myocardial infarction [Fatal]
  - Acute myocardial infarction [Fatal]
  - Condition aggravated [Unknown]
